FAERS Safety Report 8073209-6 (Version None)
Quarter: 2012Q1

REPORT INFORMATION
  Report Type: 
  Country: None (occurrence: None)
  Receive Date: 20120126
  Receipt Date: 20120123
  Transmission Date: 20120608
  Serious: Yes (Hospitalization)
  Sender: FDA-Public Use
  Company Number: PHEH2012US002013

PATIENT
  Sex: Male

DRUGS (4)
  1. TOBI [Suspect]
     Indication: CYSTIC FIBROSIS
     Dosage: 300 MG, BID
     Dates: start: 20110901
  2. VITAMIN TAB [Concomitant]
  3. PULMOZYME [Concomitant]
  4. CREON [Concomitant]

REACTIONS (1)
  - CARBON DIOXIDE INCREASED [None]
